FAERS Safety Report 4599372-7 (Version None)
Quarter: 2005Q1

REPORT INFORMATION
  Report Type: 
  Country: None (occurrence: None)
  Receive Date: 20050303
  Receipt Date: 20050217
  Transmission Date: 20050727
  Serious: No
  Sender: FDA-Public Use
  Company Number: 2005S1000629

PATIENT
  Age: 71 Year
  Sex: Female

DRUGS (1)
  1. CLOZAPINE [Suspect]
     Dosage: 50MG QAM AND 250 MG HS, ORAL
     Route: 048

REACTIONS (1)
  - DEATH [None]
